FAERS Safety Report 24796882 (Version 1)
Quarter: 2025Q1

REPORT INFORMATION
  Report Type: Spontaneous
  Country: CN (occurrence: CN)
  Receive Date: 20250101
  Receipt Date: 20250101
  Transmission Date: 20250409
  Serious: Yes (Hospitalization, Other)
  Sender: NOVARTIS
  Company Number: CN-002147023-NVSC2024CN245432

PATIENT
  Age: 81 Year
  Sex: Female

DRUGS (1)
  1. SACUBITRIL\VALSARTAN [Suspect]
     Active Substance: SACUBITRIL\VALSARTAN
     Indication: Hypertension
     Dosage: 100 MG, QD
     Route: 048
     Dates: start: 20190202, end: 20241220

REACTIONS (13)
  - Blood creatinine increased [Unknown]
  - Arteriosclerosis coronary artery [Unknown]
  - Tachypnoea [Unknown]
  - Cardiac dysfunction [Unknown]
  - Angina pectoris [Unknown]
  - N-terminal prohormone brain natriuretic peptide increased [Unknown]
  - Blood magnesium decreased [Unknown]
  - Blood urea increased [Unknown]
  - Blood uric acid increased [Unknown]
  - White blood cells urine negative [Unknown]
  - Oliguria [Unknown]
  - Blood potassium decreased [Unknown]
  - Blood urea nitrogen/creatinine ratio decreased [Unknown]

NARRATIVE: CASE EVENT DATE: 20241212
